FAERS Safety Report 6465896-0 (Version None)
Quarter: 2009Q4

REPORT INFORMATION
  Report Type: 
  Country: None (occurrence: None)
  Receive Date: 20091123
  Receipt Date: 20091001
  Transmission Date: 20100525
  Serious: Yes (Other)
  Sender: FDA-Public Use
  Company Number: NO-GDP-09407036

PATIENT
  Sex: Female

DRUGS (1)
  1. BASIRON AC (BENZOYL PEROXIDE) 5 % [Suspect]
     Dosage: (TOPICAL)
     Route: 061
     Dates: start: 20090219, end: 20090220

REACTIONS (2)
  - ANGIOEDEMA [None]
  - DERMATITIS ALLERGIC [None]
